FAERS Safety Report 8992825 (Version 1)
Quarter: 2013Q1

REPORT INFORMATION
  Report Type: Spontaneous
  Country: US (occurrence: US)
  Receive Date: 20130102
  Receipt Date: 20130102
  Transmission Date: 20140127
  Serious: Yes (Death)
  Sender: FDA-Public Use
  Company Number: US-AMGEN-USASP2012084203

PATIENT
  Age: 76 Year
  Sex: Female

DRUGS (4)
  1. ENBREL [Suspect]
     Indication: PRODUCT USED FOR UNKNOWN INDICATION
     Dosage: 50 MG, ONCE A WEEK
     Route: 058
  2. FOLIC ACID [Concomitant]
     Dosage: 20 MG, UNK
  3. METHOTREXATE [Concomitant]
     Dosage: UNK
  4. ALTACE [Concomitant]
     Dosage: 5 MG, UNK

REACTIONS (1)
  - Death [Fatal]
